FAERS Safety Report 15703037 (Version 1)
Quarter: 2018Q4

REPORT INFORMATION
  Report Type: Spontaneous
  Country: US (occurrence: US)
  Receive Date: 20181208
  Receipt Date: 20181208
  Transmission Date: 20190205
  Serious: Yes (Hospitalization, Disabling)
  Sender: FDA-Public Use
  Company Number: None

PATIENT
  Age: 34 Year
  Sex: Female
  Weight: 67.5 kg

DRUGS (8)
  1. CLONAZEPAM. [Suspect]
     Active Substance: CLONAZEPAM
     Indication: INSOMNIA
     Dosage: ?          QUANTITY:1 TABLET(S);?
     Route: 048
     Dates: start: 20181121, end: 20181130
  2. TOPROL XL [Concomitant]
     Active Substance: METOPROLOL SUCCINATE
  3. KLONOPIN [Concomitant]
     Active Substance: CLONAZEPAM
  4. CLONAZEPAM. [Suspect]
     Active Substance: CLONAZEPAM
     Indication: AGORAPHOBIA
     Dosage: ?          QUANTITY:1 TABLET(S);?
     Route: 048
     Dates: start: 20181121, end: 20181130
  5. MARINOL [Concomitant]
     Active Substance: DRONABINOL
  6. TYLENOL [Concomitant]
     Active Substance: ACETAMINOPHEN
  7. CLONAZEPAM. [Suspect]
     Active Substance: CLONAZEPAM
     Indication: ANXIETY
     Dosage: ?          QUANTITY:1 TABLET(S);?
     Route: 048
     Dates: start: 20181121, end: 20181130
  8. OMEPREZOLE [Concomitant]
     Active Substance: OMEPRAZOLE

REACTIONS (8)
  - Migraine [None]
  - Abdominal pain [None]
  - Myalgia [None]
  - Arthralgia [None]
  - Suicide attempt [None]
  - Palpitations [None]
  - Product substitution issue [None]
  - Insomnia [None]

NARRATIVE: CASE EVENT DATE: 20181126
